FAERS Safety Report 22004260 (Version 2)
Quarter: 2023Q1

REPORT INFORMATION
  Report Type: Spontaneous
  Country: DE (occurrence: DE)
  Receive Date: 20230217
  Receipt Date: 20230317
  Transmission Date: 20230418
  Serious: Yes (Other)
  Sender: FDA-Public Use
  Company Number: DE-BoehringerIngelheim-2023-BI-219571

PATIENT
  Age: 57 Year
  Sex: Female
  Weight: 96 kg

DRUGS (4)
  1. JARDIANCE [Suspect]
     Active Substance: EMPAGLIFLOZIN
     Indication: Diabetes mellitus
  2. Eucreas 50/1000 [Concomitant]
     Indication: Diabetes mellitus
     Dosage: 50/1000 2X DAILY
     Route: 048
  3. Velafaxin 150 [Concomitant]
     Indication: Product used for unknown indication
     Route: 048
  4. LITHIUM [Concomitant]
     Active Substance: LITHIUM
     Indication: Product used for unknown indication

REACTIONS (1)
  - Genital abscess [Not Recovered/Not Resolved]

NARRATIVE: CASE EVENT DATE: 20230126
